FAERS Safety Report 10160650 (Version 3)
Quarter: 2015Q1

REPORT INFORMATION
  Report Type: Spontaneous
  Country: US (occurrence: US)
  Receive Date: 20140508
  Receipt Date: 20150328
  Transmission Date: 20150720
  Serious: Yes (Hospitalization, Other)
  Sender: FDA-Public Use
  Company Number: US-AMGEN-USASP2014032124

PATIENT
  Age: 7 Year
  Sex: Male
  Weight: 36 kg

DRUGS (4)
  1. NEURONTIN [Concomitant]
     Active Substance: GABAPENTIN
     Indication: NEURALGIA
     Dosage: 200 MG, TID
     Route: 048
  2. XGEVA [Suspect]
     Active Substance: DENOSUMAB
     Indication: ANEURYSMAL BONE CYST
     Dosage: 35-50 MG, QWK (WEEKLY X 4)
     Route: 058
     Dates: start: 20120927
  3. XGEVA [Suspect]
     Active Substance: DENOSUMAB
     Indication: SPINAL CORD NEOPLASM
  4. IBUPROFEN. [Concomitant]
     Active Substance: IBUPROFEN
     Indication: PAIN
     Dosage: UNK UNK, AS NECESSARY

REACTIONS (10)
  - Acute kidney injury [Recovered/Resolved]
  - Decreased activity [Unknown]
  - Weight decreased [Unknown]
  - Hypercalcaemia [Recovered/Resolved]
  - Decreased appetite [Unknown]
  - Nausea [Unknown]
  - Pyrexia [Unknown]
  - Abdominal pain [Unknown]
  - Hypertensive emergency [Recovered/Resolved]
  - Vomiting [Unknown]

NARRATIVE: CASE EVENT DATE: 20140430
